FAERS Safety Report 6876976-X (Version None)
Quarter: 2010Q3

REPORT INFORMATION
  Report Type: 
  Country: None (occurrence: None)
  Receive Date: 20100727
  Receipt Date: 20100713
  Transmission Date: 20110219
  Serious: Yes (Hospitalization, Other)
  Sender: FDA-Public Use
  Company Number: FR-ELI_LILLY_AND_COMPANY-FR201007002508

PATIENT
  Sex: Female

DRUGS (9)
  1. ZYPREXA [Suspect]
     Indication: MAJOR DEPRESSION
     Dosage: 5 MG, DAILY (1/D)
     Route: 048
     Dates: start: 20090901
  2. ZYPREXA [Suspect]
     Dosage: 10 MG, DAILY (1/D)
     Route: 048
  3. ZYPREXA [Suspect]
     Dosage: 5 MG, DAILY (1/D)
     Route: 048
     Dates: end: 20100606
  4. STEDIRIL [Concomitant]
     Indication: CONTRACEPTION
     Dosage: UNK, UNKNOWN
     Route: 048
     Dates: end: 20100605
  5. ZOLOFT [Concomitant]
     Indication: MAJOR DEPRESSION
     Dosage: 50 MG, DAILY (1/D)
     Route: 048
  6. ZOLOFT [Concomitant]
     Dosage: 25 MG, DAILY (1/D)
     Route: 048
  7. ZOLPIDEM [Concomitant]
     Dosage: 10 MG, DAILY (1/D)
     Route: 048
  8. LEXOMIL [Concomitant]
     Dosage: 6 MG, DAILY (1/D)
     Route: 048
  9. NEXIUM [Concomitant]
     Dosage: 40 MG, DAILY (1/D)
     Route: 048

REACTIONS (3)
  - OFF LABEL USE [None]
  - PULMONARY EMBOLISM [None]
  - WEIGHT INCREASED [None]
